FAERS Safety Report 10589735 (Version 1)
Quarter: 2014Q4

REPORT INFORMATION
  Report Type: Report from Study
  Country: US (occurrence: US)
  Receive Date: 20141118
  Receipt Date: 20141118
  Transmission Date: 20150529
  Serious: Yes (Death, Hospitalization)
  Sender: FDA-Public Use
  Company Number: PHEH2014US022997

PATIENT
  Age: 81 Year
  Sex: Male

DRUGS (1)
  1. EXJADE [Suspect]
     Active Substance: DEFERASIROX
     Indication: HAEMOCHROMATOSIS
     Dosage: 750 MG, QD
     Route: 048

REACTIONS (3)
  - Unresponsive to stimuli [Unknown]
  - Multi-organ failure [Fatal]
  - Fall [Unknown]

NARRATIVE: CASE EVENT DATE: 20141104
